FAERS Safety Report 7707855-3 (Version None)
Quarter: 2011Q3

REPORT INFORMATION
  Report Type: 
  Country: None (occurrence: None)
  Receive Date: 20110824
  Receipt Date: 20110131
  Transmission Date: 20111222
  Serious: No
  Sender: FDA-Public Use
  Company Number: US-BAYER-2011-012102

PATIENT
  Age: 56 Year
  Sex: Female

DRUGS (1)
  1. MAGNEVIST [Suspect]
     Indication: ARTERIOGRAM CAROTID
     Dosage: 20 ML, ONCE
     Dates: start: 20110131, end: 20110131

REACTIONS (3)
  - NASAL CONGESTION [None]
  - FLUSHING [None]
  - SNEEZING [None]
